FAERS Safety Report 10272564 (Version 2)
Quarter: 2014Q3

REPORT INFORMATION
  Report Type: Spontaneous
  Country: BR (occurrence: BR)
  Receive Date: 20140702
  Receipt Date: 20140717
  Transmission Date: 20150326
  Serious: Yes (Other)
  Sender: FDA-Public Use
  Company Number: BR-RANBAXY-2014R5-82970

PATIENT
  Sex: Male
  Weight: 71 kg

DRUGS (3)
  1. OXCARBAZEPINE. [Suspect]
     Active Substance: OXCARBAZEPINE
     Dosage: 2 DF, BID
     Route: 048
     Dates: end: 20140603
  2. MITRAZAPINE [Concomitant]
     Indication: STRESS
     Dosage: 45 MG, QD
     Route: 048
  3. OXCARBAZEPINE. [Suspect]
     Active Substance: OXCARBAZEPINE
     Indication: EPILEPSY
     Dosage: 2 DF, BID
     Route: 048
     Dates: start: 20140516

REACTIONS (2)
  - Drug ineffective [Unknown]
  - Convulsion [Recovered/Resolved]

NARRATIVE: CASE EVENT DATE: 20140518
